FAERS Safety Report 10017867 (Version 1)
Quarter: 2014Q1

REPORT INFORMATION
  Report Type: Spontaneous
  Country: US (occurrence: US)
  Receive Date: 20140318
  Receipt Date: 20140318
  Transmission Date: 20141002
  Serious: No
  Sender: FDA-Public Use
  Company Number: US-BRISTOL-MYERS SQUIBB COMPANY-18854208

PATIENT
  Age: 57 Year
  Sex: Male
  Weight: 49.43 kg

DRUGS (5)
  1. ERBITUX [Suspect]
     Indication: THROAT CANCER
     Dosage: LAST INF:30APR2013
     Dates: start: 2013
  2. VITAMINS [Concomitant]
  3. FOLIC ACID [Concomitant]
  4. VITAMIN B12 [Concomitant]
  5. LORTAB [Concomitant]
     Indication: PAIN

REACTIONS (2)
  - Skin disorder [Unknown]
  - Weight decreased [Unknown]
